FAERS Safety Report 14878425 (Version 2)
Quarter: 2019Q2

REPORT INFORMATION
  Report Type: Spontaneous
  Country: US (occurrence: US)
  Receive Date: 20180511
  Receipt Date: 20190510
  Transmission Date: 20190711
  Serious: No
  Sender: FDA-Public Use
  Company Number: US-BAUSCH-BL-2017-035119

PATIENT
  Age: 58 Year
  Sex: Female
  Weight: 53.57 kg

DRUGS (1)
  1. LATANOPROST OPHTHALMIC SOLUTION 0.005% [Suspect]
     Active Substance: LATANOPROST
     Indication: GLAUCOMA
     Route: 047
     Dates: start: 201706, end: 20171214

REACTIONS (2)
  - Intraocular pressure increased [Unknown]
  - Drug ineffective [Recovered/Resolved]
